FAERS Safety Report 13774982 (Version 1)
Quarter: 2017Q3

REPORT INFORMATION
  Report Type: Spontaneous
  Country: AT (occurrence: AT)
  Receive Date: 20170721
  Receipt Date: 20170721
  Transmission Date: 20171127
  Serious: Yes (Death, Other)
  Sender: FDA-Public Use
  Company Number: AT-EDENBRIDGE PHARMACEUTICALS, LLC-AT-2017EDE000100

PATIENT
  Age: 46 Year
  Sex: Male

DRUGS (17)
  1. MEROPENEM. [Suspect]
     Active Substance: MEROPENEM
     Indication: SYSTEMIC INFLAMMATORY RESPONSE SYNDROME
  2. LINEZOLID. [Suspect]
     Active Substance: LINEZOLID
     Indication: SYSTEMIC INFLAMMATORY RESPONSE SYNDROME
  3. CEFTAZIDIM [Suspect]
     Active Substance: CEFTAZIDIME
     Indication: SYSTEMIC INFLAMMATORY RESPONSE SYNDROME
  4. RIFAMPICIN [Suspect]
     Active Substance: RIFAMPIN
     Indication: ACUTE RESPIRATORY DISTRESS SYNDROME
     Dosage: UNK
  5. PIPERACILLIN AND TAZOBACTAM [Suspect]
     Active Substance: PIPERACILLIN SODIUM\TAZOBACTAM SODIUM
     Indication: SYSTEMIC INFLAMMATORY RESPONSE SYNDROME
  6. CIPROFLOXACIN. [Suspect]
     Active Substance: CIPROFLOXACIN
     Indication: ACUTE RESPIRATORY DISTRESS SYNDROME
     Dosage: UNK
  7. CEFEPIME [Suspect]
     Active Substance: CEFEPIME HYDROCHLORIDE
     Indication: SYSTEMIC INFLAMMATORY RESPONSE SYNDROME
  8. PIPERACILLIN AND TAZOBACTAM [Suspect]
     Active Substance: PIPERACILLIN SODIUM\TAZOBACTAM SODIUM
     Indication: ACUTE RESPIRATORY DISTRESS SYNDROME
     Dosage: UNK
  9. PREDNISOLONE SODIUM PHOSPHATE. [Suspect]
     Active Substance: PREDNISOLONE SODIUM PHOSPHATE
     Indication: PRODUCT USED FOR UNKNOWN INDICATION
     Dosage: 50 MG, QD
  10. CIPROFLOXACIN. [Suspect]
     Active Substance: CIPROFLOXACIN
     Indication: SYSTEMIC INFLAMMATORY RESPONSE SYNDROME
  11. AMIKACIN [Suspect]
     Active Substance: AMIKACIN
     Indication: ACUTE RESPIRATORY DISTRESS SYNDROME
     Dosage: UNK
  12. CEFEPIME [Suspect]
     Active Substance: CEFEPIME HYDROCHLORIDE
     Indication: ACUTE RESPIRATORY DISTRESS SYNDROME
     Dosage: UNK
  13. MEROPENEM. [Suspect]
     Active Substance: MEROPENEM
     Indication: ACUTE RESPIRATORY DISTRESS SYNDROME
     Dosage: UNK
  14. LINEZOLID. [Suspect]
     Active Substance: LINEZOLID
     Indication: ACUTE RESPIRATORY DISTRESS SYNDROME
     Dosage: UNK
  15. RIFAMPICIN [Suspect]
     Active Substance: RIFAMPIN
     Indication: SYSTEMIC INFLAMMATORY RESPONSE SYNDROME
  16. CEFTAZIDIM [Suspect]
     Active Substance: CEFTAZIDIME
     Indication: ACUTE RESPIRATORY DISTRESS SYNDROME
     Dosage: UNK
  17. AMOXICILLIN CLAVULANIC ACID [Suspect]
     Active Substance: AMOXICILLIN\CLAVULANIC ACID
     Indication: ACUTE RESPIRATORY DISTRESS SYNDROME
     Dosage: UNK

REACTIONS (2)
  - Enterocolitis [Not Recovered/Not Resolved]
  - Multiple organ dysfunction syndrome [Fatal]
